FAERS Safety Report 4491893-0 (Version None)
Quarter: 2004Q4

REPORT INFORMATION
  Report Type: 
  Country: None (occurrence: None)
  Receive Date: 20041029
  Receipt Date: 20041029
  Transmission Date: 20050328
  Serious: No
  Sender: FDA-Public Use
  Company Number: None

PATIENT
  Age: 56 Year
  Sex: Male

DRUGS (1)
  1. LEVAQUIN [Suspect]
     Dosage: 500 MG DAILY ORAL
     Route: 048
     Dates: start: 20040926, end: 20040928

REACTIONS (3)
  - DYSPNOEA [None]
  - FLUSHING [None]
  - PRURITUS [None]
